FAERS Safety Report 4611104-2 (Version None)
Quarter: 2005Q2

REPORT INFORMATION
  Report Type: 
  Country: None (occurrence: None)
  Receive Date: 20050314
  Receipt Date: 20040928
  Transmission Date: 20051028
  Serious: Yes (Hospitalization)
  Sender: FDA-Public Use
  Company Number: USA040772929

PATIENT
  Age: 63 Year
  Sex: Male

DRUGS (7)
  1. GEMZAR [Suspect]
     Indication: NON-SMALL CELL LUNG CANCER
     Dosage: 1600 MG
     Dates: start: 20040610, end: 20040617
  2. CARBOPLATIN [Concomitant]
  3. LISINOPRIL [Concomitant]
  4. GLIPIZIDE [Concomitant]
  5. COMPAZINE [Concomitant]
  6. DOCUSATE [Concomitant]
  7. SENNA [Concomitant]

REACTIONS (5)
  - ECCHYMOSIS [None]
  - NEUTROPENIA [None]
  - PRODUCTIVE COUGH [None]
  - PYREXIA [None]
  - RASH MACULO-PAPULAR [None]
